FAERS Safety Report 23250881 (Version 3)
Quarter: 2023Q4

REPORT INFORMATION
  Report Type: Report from Study
  Country: CA (occurrence: CA)
  Receive Date: 20231201
  Receipt Date: 20231220
  Transmission Date: 20240110
  Serious: Yes (Hospitalization, Other)
  Sender: FDA-Public Use
  Company Number: CA-HLS-202200989

PATIENT
  Age: 36 Year
  Sex: Male

DRUGS (7)
  1. CLOZARIL [Suspect]
     Active Substance: CLOZAPINE
     Indication: Product used for unknown indication
     Route: 048
     Dates: start: 20120220
  2. CLOZARIL [Suspect]
     Active Substance: CLOZAPINE
     Indication: Product used for unknown indication
     Dosage: RE-START 06-OCT-2023
     Route: 048
  3. PERINDOPRIL [Concomitant]
     Active Substance: PERINDOPRIL
     Indication: Product used for unknown indication
     Dosage: A.M
     Route: 065
  4. CLONAZEPAM [Concomitant]
     Active Substance: CLONAZEPAM
     Indication: Product used for unknown indication
     Dosage: HS
     Route: 065
  5. ATORVASTATIN [Concomitant]
     Active Substance: ATORVASTATIN
     Indication: Product used for unknown indication
     Dosage: HS
     Route: 065
  6. METFORMIN [Concomitant]
     Active Substance: METFORMIN HYDROCHLORIDE
     Indication: Product used for unknown indication
     Dosage: TWICE A DAY
     Route: 065
  7. OLANZAPINE [Concomitant]
     Active Substance: OLANZAPINE
     Indication: Product used for unknown indication
     Dosage: 5 MG IN MORNING AND 10 MG HS
     Route: 065

REACTIONS (13)
  - Drug hypersensitivity [Unknown]
  - General physical health deterioration [Unknown]
  - Pericardial effusion [Unknown]
  - COVID-19 [Recovered/Resolved]
  - Pleurisy [Unknown]
  - Psychotic disorder [Unknown]
  - Pneumonia [Unknown]
  - Illness [Unknown]
  - Pleural effusion [Not Recovered/Not Resolved]
  - Mobility decreased [Unknown]
  - Respiratory disorder [Unknown]
  - Viral infection [Unknown]
  - Vocal cord paralysis [Unknown]

NARRATIVE: CASE EVENT DATE: 20211201
